FAERS Safety Report 19633182 (Version 3)
Quarter: 2022Q1

REPORT INFORMATION
  Report Type: Report from Study
  Country: US (occurrence: None)
  Receive Date: 20210730
  Receipt Date: 20220203
  Transmission Date: 20220424
  Serious: Yes (Hospitalization, Other)
  Sender: FDA-Public Use
  Company Number: US-MERCK HEALTHCARE KGAA-9254406

PATIENT
  Age: 54 Year
  Sex: Female

DRUGS (1)
  1. REBIF [Suspect]
     Active Substance: INTERFERON BETA-1A
     Indication: Multiple sclerosis
     Route: 058
     Dates: start: 2015

REACTIONS (4)
  - Hip arthroplasty [Unknown]
  - Sciatic nerve injury [Unknown]
  - Post procedural complication [Unknown]
  - Nerve compression [Unknown]

NARRATIVE: CASE EVENT DATE: 20210315
